FAERS Safety Report 5273770-0 (Version None)
Quarter: 2007Q1

REPORT INFORMATION
  Report Type: 
  Country: None (occurrence: None)
  Receive Date: 20070321
  Receipt Date: 20070321
  Transmission Date: 20070707
  Serious: No
  Sender: FDA-Public Use
  Company Number: None

PATIENT
  Age: 30 Year
  Sex: Female
  Weight: 79.3795 kg

DRUGS (1)
  1. NUVARING [Suspect]
     Indication: CONTRACEPTION
     Dosage: 1 RING IN PLACE FOR 3 WEEKS MONTHLY VAG
     Route: 067

REACTIONS (7)
  - ABDOMINAL DISTENSION [None]
  - ABDOMINAL PAIN UPPER [None]
  - CONTRACEPTIVE DEVICE COMPLICATION [None]
  - IMPAIRED WORK ABILITY [None]
  - INSOMNIA [None]
  - VIRAL INFECTION [None]
  - WEIGHT DECREASED [None]
